FAERS Safety Report 11705653 (Version 2)
Quarter: 2015Q4

REPORT INFORMATION
  Report Type: Report from Study
  Country: GB (occurrence: GB)
  Receive Date: 20151106
  Receipt Date: 20151123
  Transmission Date: 20160304
  Serious: Yes (Death, Hospitalization, Other)
  Sender: FDA-Public Use
  Company Number: GB-ABBVIE-15K-167-1492929-00

PATIENT
  Age: 53 Year
  Sex: Male
  Weight: 92 kg

DRUGS (18)
  1. LACTULOSE. [Concomitant]
     Active Substance: LACTULOSE
     Indication: PRODUCT USED FOR UNKNOWN INDICATION
  2. FUROSEMIDE. [Concomitant]
     Active Substance: FUROSEMIDE
     Indication: PRODUCT USED FOR UNKNOWN INDICATION
  3. VITAMIN D COMPUND [Concomitant]
     Indication: PRODUCT USED FOR UNKNOWN INDICATION
  4. SPIRONOLACTONE. [Concomitant]
     Active Substance: SPIRONOLACTONE
     Indication: PRODUCT USED FOR UNKNOWN INDICATION
  5. VITAMIN B COMP [Concomitant]
     Indication: PRODUCT USED FOR UNKNOWN INDICATION
  6. PABRINEX [Concomitant]
     Indication: PRODUCT USED FOR UNKNOWN INDICATION
  7. CALCIUM RESONIUM [Concomitant]
     Indication: PRODUCT USED FOR UNKNOWN INDICATION
  8. LANSOPRAZOLE. [Concomitant]
     Active Substance: LANSOPRAZOLE
     Indication: PRODUCT USED FOR UNKNOWN INDICATION
  9. THIAMINE. [Concomitant]
     Active Substance: THIAMINE
     Indication: PRODUCT USED FOR UNKNOWN INDICATION
  10. HUMIRA [Suspect]
     Active Substance: ADALIMUMAB
     Indication: PSORIASIS
     Route: 058
     Dates: start: 20140916
  11. CO-AMOXICLAV [Concomitant]
     Active Substance: AMOXICILLIN\CLAVULANIC ACID
     Indication: PRODUCT USED FOR UNKNOWN INDICATION
     Dates: start: 20150209, end: 20150213
  12. BALNEUM BATH OIL [Concomitant]
     Indication: PRODUCT USED FOR UNKNOWN INDICATION
     Dates: start: 20071019
  13. DIPROBASE [Concomitant]
     Active Substance: CHLOROCRESOL
     Indication: PRODUCT USED FOR UNKNOWN INDICATION
     Dates: start: 20071019
  14. TAZOCIN [Concomitant]
     Active Substance: PIPERACILLIN SODIUM\TAZOBACTAM SODIUM
     Indication: PRODUCT USED FOR UNKNOWN INDICATION
     Dates: start: 20150206, end: 20150208
  15. PROPRANOLOL [Concomitant]
     Active Substance: PROPRANOLOL\PROPRANOLOL HYDROCHLORIDE
     Indication: PRODUCT USED FOR UNKNOWN INDICATION
  16. POLYTAR [Concomitant]
     Indication: PRODUCT USED FOR UNKNOWN INDICATION
     Dates: start: 20070803
  17. VITAMIN K NOS [Concomitant]
     Indication: PRODUCT USED FOR UNKNOWN INDICATION
     Dates: start: 20150126, end: 20150126
  18. ENOXAPARIN SODIUM. [Concomitant]
     Active Substance: ENOXAPARIN SODIUM
     Indication: PRODUCT USED FOR UNKNOWN INDICATION
     Dates: start: 20150204, end: 20150209

REACTIONS (29)
  - Alcoholic liver disease [Recovered/Resolved]
  - Hepatic encephalopathy [Recovered/Resolved]
  - Ascites [Unknown]
  - Enterococcal infection [Unknown]
  - Hepatic encephalopathy [Recovered/Resolved]
  - Ascites [Unknown]
  - Encephalopathy [Unknown]
  - Enterobacter infection [Unknown]
  - Coagulopathy [Unknown]
  - Alcoholic liver disease [Recovered/Resolved]
  - Ascites [Unknown]
  - Hepatic encephalopathy [Recovered/Resolved]
  - Hepatic failure [Recovered/Resolved]
  - Hepatic failure [Recovered/Resolved]
  - Encephalopathy [Unknown]
  - Hepatic encephalopathy [Recovered/Resolved]
  - Peritonitis bacterial [Unknown]
  - Chronic hepatic failure [Fatal]
  - Encephalopathy [Unknown]
  - Hepatic cirrhosis [Recovered/Resolved]
  - Alcoholic liver disease [Recovered/Resolved]
  - Ascites [Unknown]
  - Hepatic failure [Recovered/Resolved]
  - Ascites [Unknown]
  - Hypoglycaemia [Unknown]
  - Encephalopathy [Unknown]
  - Encephalopathy [Unknown]
  - Hepatic encephalopathy [Recovered/Resolved]
  - Peritonitis bacterial [Unknown]

NARRATIVE: CASE EVENT DATE: 201412
